FAERS Safety Report 6682004-1 (Version None)
Quarter: 2010Q2

REPORT INFORMATION
  Report Type: 
  Country: None (occurrence: None)
  Receive Date: 20100414
  Receipt Date: 20100414
  Transmission Date: 20101027
  Serious: Yes (Other)
  Sender: FDA-Public Use
  Company Number: None

PATIENT
  Sex: Male
  Weight: 79.3795 kg

DRUGS (1)
  1. UP+UP NON-DROWSY ALLERGY RELIEF 10 MG LORATADINE TARGET CORP. [Suspect]
     Indication: SEASONAL ALLERGY
     Dosage: 1 TABLET ONCE DAILY PO
     Route: 048
     Dates: start: 20100410, end: 20100412

REACTIONS (4)
  - DRUG INEFFECTIVE [None]
  - EYE PRURITUS [None]
  - EYE SWELLING [None]
  - NASAL CONGESTION [None]
